FAERS Safety Report 7198156-3 (Version None)
Quarter: 2010Q4

REPORT INFORMATION
  Report Type: 
  Country: None (occurrence: None)
  Receive Date: 20101223
  Receipt Date: 20101223
  Transmission Date: 20110411
  Serious: Yes (Hospitalization)
  Sender: FDA-Public Use
  Company Number: None

PATIENT
  Age: 42 Year
  Sex: Male
  Weight: 72 kg

DRUGS (1)
  1. TRAMADOL HCL [Suspect]
     Indication: PAIN
     Dosage: 50 MG PRN PO
     Route: 048
     Dates: start: 20101210, end: 20101210

REACTIONS (1)
  - BLOOD PRESSURE INCREASED [None]
